FAERS Safety Report 8807375 (Version 1)
Quarter: 2012Q4

REPORT INFORMATION
  Report Type: 
  Country: ES (occurrence: ES)
  Receive Date: 20120925
  Receipt Date: 20120925
  Transmission Date: 20130627
  Serious: Yes (Other)
  Sender: FDA-Public Use
  Company Number: ES-VERTEX PHARMACEUTICAL INC.-000000000000000804

PATIENT
  Age: 52 Year
  Sex: Male
  Weight: 79 kg

DRUGS (3)
  1. INCIVO [Suspect]
     Indication: HEPATITIS C
     Dosage: Dosage Form: Tablet
     Route: 048
     Dates: start: 20120323, end: 20120526
  2. INTERFERON ALFA-2A [Suspect]
     Indication: HEPATITIS C
     Dates: start: 20120323
  3. RIBAVIRIN [Suspect]
     Indication: HEPATITIS C
     Dates: start: 20120323

REACTIONS (2)
  - Rash [Recovered/Resolved]
  - Anaemia [Recovered/Resolved]
